FAERS Safety Report 6003171-9 (Version None)
Quarter: 2008Q4

REPORT INFORMATION
  Report Type: 
  Country: None (occurrence: None)
  Receive Date: 20081216
  Receipt Date: 20081211
  Transmission Date: 20090506
  Serious: Yes (Other)
  Sender: FDA-Public Use
  Company Number: PE-JNJFOC-20081203365

PATIENT
  Age: 40 Year
  Sex: Male

DRUGS (1)
  1. RISPERDAL CONSTA [Suspect]
     Indication: DRUG USE FOR UNKNOWN INDICATION
     Route: 030

REACTIONS (6)
  - DERMATITIS BULLOUS [None]
  - DIZZINESS [None]
  - FLUID RETENTION [None]
  - HEPATIC STEATOSIS [None]
  - SPLENOMEGALY [None]
  - VISION BLURRED [None]
